FAERS Safety Report 20675164 (Version 2)
Quarter: 2022Q2

REPORT INFORMATION
  Report Type: Spontaneous
  Country: JP (occurrence: JP)
  Receive Date: 20220405
  Receipt Date: 20220425
  Transmission Date: 20220720
  Serious: No
  Sender: FDA-Public Use
  Company Number: JP-JNJFOC-20220400542

PATIENT
  Age: 56 Year
  Sex: Male

DRUGS (3)
  1. ONEDURO [Suspect]
     Active Substance: FENTANYL
     Indication: Pain
     Dosage: FENTANYL (ONE DAY MATRIX PATCH) 100MCG/HR
     Route: 062
     Dates: start: 20140301
  2. ONEDURO [Suspect]
     Active Substance: FENTANYL
  3. ONEDURO [Suspect]
     Active Substance: FENTANYL

REACTIONS (2)
  - Product adhesion issue [Unknown]
  - Dermatitis [Recovered/Resolved]
